FAERS Safety Report 4356097-0 (Version None)
Quarter: 2004Q2

REPORT INFORMATION
  Report Type: 
  Country: None (occurrence: None)
  Receive Date: 20040511
  Receipt Date: 20040506
  Transmission Date: 20050107
  Serious: Yes (Other)
  Sender: FDA-Public Use
  Company Number: US-GLAXOSMITHKLINE-A0509840A

PATIENT
  Sex: Female

DRUGS (3)
  1. REQUIP [Suspect]
     Indication: RESTLESS LEGS SYNDROME
     Route: 048
  2. WELLBUTRIN [Suspect]
     Route: 048
  3. SELECTIVE SEROTONIN REUPTAKE INHIBITOR [Concomitant]

REACTIONS (2)
  - SIMPLE PARTIAL SEIZURES [None]
  - TREMOR [None]
